FAERS Safety Report 9801135 (Version 1)
Quarter: 2014Q1

REPORT INFORMATION
  Report Type: Spontaneous
  Country: US (occurrence: US)
  Receive Date: 20140107
  Receipt Date: 20140107
  Transmission Date: 20141002
  Serious: No
  Sender: FDA-Public Use
  Company Number: US-BAYER-2014-002258

PATIENT
  Age: 86 Year
  Sex: Male
  Weight: 85.26 kg

DRUGS (1)
  1. ALEVE CAPLET [Suspect]
     Indication: ARTHRITIS
     Dosage: 2 DF, BID
     Route: 048
     Dates: start: 20140105, end: 20140106

REACTIONS (2)
  - Extra dose administered [None]
  - Expired drug administered [None]
